FAERS Safety Report 5486462-X (Version None)
Quarter: 2007Q4

REPORT INFORMATION
  Report Type: 
  Country: None (occurrence: None)
  Receive Date: 20071016
  Receipt Date: 20071009
  Transmission Date: 20080405
  Serious: Yes (Other)
  Sender: FDA-Public Use
  Company Number: B0479985A

PATIENT
  Age: 3 Year
  Sex: Female
  Weight: 13.5 kg

DRUGS (2)
  1. ZINACEF [Suspect]
     Dosage: .65G TWICE PER DAY
     Route: 042
     Dates: start: 20070706, end: 20070712
  2. TRADITIONAL CHINESE MEDICINE [Concomitant]
     Indication: DRUG USE FOR UNKNOWN INDICATION
     Route: 042

REACTIONS (3)
  - HYPERSENSITIVITY [None]
  - LARYNGEAL OEDEMA [None]
  - RASH [None]
